FAERS Safety Report 20374455 (Version 1)
Quarter: 2022Q1

REPORT INFORMATION
  Report Type: Spontaneous
  Country: IN (occurrence: IN)
  Receive Date: 20220125
  Receipt Date: 20220125
  Transmission Date: 20220423
  Serious: Yes (Other)
  Sender: FDA-Public Use
  Company Number: IN-ELI_LILLY_AND_COMPANY-IN202201005908

PATIENT
  Age: 55 Year
  Sex: Male

DRUGS (3)
  1. PEMETREXED [Suspect]
     Active Substance: PEMETREXED
     Indication: Adenocarcinoma gastric
     Dosage: 400 MG, CYCLICAL (D1 AND D8 OF 21 DAY CYCLE)
     Route: 042
     Dates: start: 201810, end: 201902
  2. GEMCITABINE HYDROCHLORIDE [Suspect]
     Active Substance: GEMCITABINE HYDROCHLORIDE
     Indication: Adenocarcinoma gastric
     Dosage: 800 MG, CYCLICAL (D1 AND D8 OF 21 DAY CYCLE)
     Route: 042
     Dates: start: 201810, end: 201902
  3. PAZOPANIB [Suspect]
     Active Substance: PAZOPANIB
     Indication: Adenocarcinoma gastric
     Dosage: 400 MG, DAILY
     Route: 048
     Dates: start: 201810, end: 201902

REACTIONS (4)
  - Pneumothorax [Recovered/Resolved]
  - Sepsis [Recovered/Resolved]
  - Fatigue [Recovered/Resolved]
  - Thrombocytopenia [Recovered/Resolved]
